FAERS Safety Report 7993981-0 (Version None)
Quarter: 2011Q4

REPORT INFORMATION
  Report Type: 
  Country: None (occurrence: None)
  Receive Date: 20111220
  Receipt Date: 20111208
  Transmission Date: 20120403
  Serious: Yes (Other)
  Sender: FDA-Public Use
  Company Number: US-BAYER-2011-118690

PATIENT
  Sex: Female

DRUGS (1)
  1. MIRENA [Suspect]
     Dosage: 20 ?G/D, CONT
     Route: 015
     Dates: start: 20090101, end: 20111208

REACTIONS (5)
  - ABDOMINAL PAIN [None]
  - DEVICE EXPULSION [None]
  - AMENORRHOEA [None]
  - DEVICE COMPONENT ISSUE [None]
  - VAGINAL HAEMORRHAGE [None]
